FAERS Safety Report 26085443 (Version 1)
Quarter: 2025Q4

REPORT INFORMATION
  Report Type: Spontaneous
  Country: JP (occurrence: JP)
  Receive Date: 20251125
  Receipt Date: 20251125
  Transmission Date: 20260117
  Serious: Yes (Other)
  Sender: ALKEM
  Company Number: JP-ALKEM LABORATORIES LIMITED-JP-ALKEM-2025-12403

PATIENT
  Age: 84 Year
  Sex: Male

DRUGS (4)
  1. TRIAMCINOLONE ACETONIDE [Suspect]
     Active Substance: TRIAMCINOLONE ACETONIDE
     Indication: Scleritis
     Dosage: UNK (SUB-TENON INJECTION)
     Route: 047
  2. TRIAMCINOLONE ACETONIDE [Suspect]
     Active Substance: TRIAMCINOLONE ACETONIDE
     Dosage: UNK (ANOTHER SUB-TENON INJECTION)
     Route: 047
  3. TRIAMCINOLONE ACETONIDE [Suspect]
     Active Substance: TRIAMCINOLONE ACETONIDE
     Dosage: UNK (20 MG IN A VOLUME OF 0.5 ML) (INJECTION)
     Route: 047
  4. FLUOROMETHOLONE [Concomitant]
     Active Substance: FLUOROMETHOLONE
     Indication: Scleritis
     Dosage: UNK
     Route: 061

REACTIONS (3)
  - Retinal vascular occlusion [Unknown]
  - Optic disc vascular disorder [Unknown]
  - Chorioretinal disorder [Unknown]
